FAERS Safety Report 9176172 (Version 1)
Quarter: 2012Q4

REPORT INFORMATION
  Report Type: 
  Country: US (occurrence: US)
  Receive Date: 20120925
  Receipt Date: 20120925
  Transmission Date: 20130627
  Serious: Yes (Other)
  Sender: FDA-Public Use
  Company Number: US-RB-044793-12

PATIENT
  Age: 30 Year
  Sex: Female

DRUGS (2)
  1. SUBUTEX [Suspect]
     Indication: PRODUCT USED FOR UNKNOWN INDICATION
     Dosage: 16 mg
     Route: 065
  2. SUBUTEX [Suspect]
     Dosage: 8 mg
     Route: 065

REACTIONS (6)
  - Abortion spontaneous [Recovered/Resolved]
  - Tremor [Recovered/Resolved]
  - Hyperhidrosis [Recovered/Resolved]
  - Chills [Recovered/Resolved]
  - Diarrhoea [Recovered/Resolved]
  - Exposure during pregnancy [Recovered/Resolved]
